FAERS Safety Report 10018891 (Version 1)
Quarter: 2014Q1

REPORT INFORMATION
  Report Type: Spontaneous
  Country: NL (occurrence: NL)
  Receive Date: 20140318
  Receipt Date: 20140318
  Transmission Date: 20141002
  Serious: Yes (Hospitalization)
  Sender: FDA-Public Use
  Company Number: NL-TEVA-468427ISR

PATIENT
  Age: 71 Year
  Sex: Female
  Weight: 90 kg

DRUGS (9)
  1. CARBOPLATINE [Suspect]
     Indication: OVARIAN CANCER
     Dosage: EXTRA INFO: ONCE PER 3 WEEKS
     Route: 042
     Dates: start: 20140220, end: 20140305
  2. PACLITAXEL INFOPL CONC 6MG/ML [Suspect]
     Indication: OVARIAN CANCER
     Dosage: EXTRA INFO: ONCE PER 3 WEEKS
     Route: 042
     Dates: start: 20140220, end: 20140305
  3. TRIAMTEREEN TABLET 50MG [Concomitant]
     Dosage: 50 MILLIGRAM DAILY;
     Route: 048
  4. DICLOFENAC-NATRIUM TABLET MSR 50MG [Concomitant]
     Dosage: 150 MILLIGRAM DAILY;
     Route: 048
  5. HYDROCHLOORTHIAZIDE TABLET 25MG [Concomitant]
     Dosage: 50 MILLIGRAM DAILY;
     Route: 048
     Dates: end: 20140227
  6. SIMVASTATINE TABLET 20MG [Concomitant]
     Dosage: 20 MILLIGRAM DAILY;
     Route: 048
  7. MOVICOLON POEDER VOOR DRANK IN SACHET [Concomitant]
     Dosage: WHEN REQUIRED A MAXIMUM OF ONCE DAILY 1 PIECE (SACHETS).
     Route: 048
  8. METOPROLOL TABLET   50MG [Concomitant]
     Dosage: 50 MILLIGRAM DAILY;
     Route: 048
  9. PANTOPRAZOL TABLET MSR 40MG [Concomitant]
     Dosage: 40 MILLIGRAM DAILY;
     Route: 048

REACTIONS (1)
  - Colitis ischaemic [Recovering/Resolving]
